FAERS Safety Report 4895592-2 (Version None)
Quarter: 2006Q1

REPORT INFORMATION
  Report Type: 
  Country: None (occurrence: None)
  Receive Date: 20060130
  Receipt Date: 20060118
  Transmission Date: 20060701
  Serious: Yes (Other)
  Sender: FDA-Public Use
  Company Number: DE-BRISTOL-MYERS SQUIBB COMPANY-13253638

PATIENT
  Sex: Female

DRUGS (2)
  1. ABILIFY [Suspect]
  2. QUETIAPINE [Suspect]

REACTIONS (2)
  - INTENTIONAL SELF-INJURY [None]
  - PSYCHOTIC DISORDER [None]
